FAERS Safety Report 15730570 (Version 3)
Quarter: 2019Q1

REPORT INFORMATION
  Report Type: Report from Study
  Country: DE (occurrence: DE)
  Receive Date: 20181217
  Receipt Date: 20190208
  Transmission Date: 20190417
  Serious: No
  Sender: FDA-Public Use
  Company Number: DE-PFIZER INC-2018504490

PATIENT
  Age: 67 Year
  Sex: Female
  Weight: 115 kg

DRUGS (8)
  1. MOVICOL [Concomitant]
     Active Substance: POLYETHYLENE GLYCOL 3350\POTASSIUM CHLORIDE\SODIUM BICARBONATE\SODIUM CHLORIDE
     Indication: PROPHYLAXIS
     Dosage: UNK
     Route: 048
     Dates: start: 20181205
  2. PALBOCICLIB [Suspect]
     Active Substance: PALBOCICLIB
     Indication: OESTROGEN RECEPTOR POSITIVE BREAST CANCER
     Dosage: 125 MG, DAILY
     Route: 048
     Dates: start: 20180913, end: 20181128
  3. ASPIRIN. [Concomitant]
     Active Substance: ASPIRIN
     Indication: DEEP VEIN THROMBOSIS
     Dosage: UNK
     Route: 048
  4. METOPROLOL. [Concomitant]
     Active Substance: METOPROLOL
     Indication: HYPERTENSION
     Dosage: UNK
     Route: 048
  5. COLECALCIFEROL [Concomitant]
     Active Substance: CHOLECALCIFEROL
     Indication: PROPHYLAXIS
     Dosage: UNK
     Route: 048
  6. CANDESARTAN. [Concomitant]
     Active Substance: CANDESARTAN
     Indication: HYPERTENSION
     Dosage: UNK
     Route: 048
  7. EXEMESTANE. [Suspect]
     Active Substance: EXEMESTANE
     Indication: OESTROGEN RECEPTOR POSITIVE BREAST CANCER
     Dosage: UNK
     Route: 048
     Dates: start: 20180913, end: 20181205
  8. TORASEMID [Concomitant]
     Active Substance: TORSEMIDE
     Indication: HYPERTENSION
     Dosage: UNK
     Route: 048
     Dates: start: 201706

REACTIONS (1)
  - Neoplasm progression [Not Recovered/Not Resolved]

NARRATIVE: CASE EVENT DATE: 20181205
